FAERS Safety Report 5223845-7 (Version None)
Quarter: 2007Q1

REPORT INFORMATION
  Report Type: 
  Country: None (occurrence: None)
  Receive Date: 20070130
  Receipt Date: 20070124
  Transmission Date: 20070707
  Serious: Yes (Hospitalization, Other)
  Sender: FDA-Public Use
  Company Number: US-ELI_LILLY_AND_COMPANY-US200608003781

PATIENT
  Age: 15 Year
  Sex: Male
  Weight: 79.365 kg

DRUGS (2)
  1. ZYPREXA [Suspect]
     Indication: AUTISM
     Dosage: 10 MG, UNK
     Dates: start: 19970601, end: 20020801
  2. ZYPREXA [Suspect]
     Dosage: 5 MG, UNK
     Dates: start: 20021201, end: 20030301

REACTIONS (8)
  - DIABETES MELLITUS [None]
  - DIABETIC COMA [None]
  - DIABETIC KETOACIDOSIS [None]
  - HEPATITIS VIRAL [None]
  - HYPERGLYCAEMIA [None]
  - PANCREATITIS [None]
  - PEPTIC ULCER PERFORATION [None]
  - WEIGHT INCREASED [None]
